FAERS Safety Report 10559104 (Version 2)
Quarter: 2016Q4

REPORT INFORMATION
  Report Type: Spontaneous
  Country: US (occurrence: US)
  Receive Date: 20141103
  Receipt Date: 20161228
  Transmission Date: 20170206
  Serious: Yes (Other)
  Sender: FDA-Public Use
  Company Number: US-AUROBINDO-AUR-APL-2014-11433

PATIENT
  Age: 56 Year
  Sex: Female

DRUGS (1)
  1. HYDROCODONE BITARTRATE AND ACETAMINOPHEN [Suspect]
     Active Substance: ACETAMINOPHEN\HYDROCODONE BITARTRATE
     Indication: PAIN IN EXTREMITY
     Dosage: UNK
     Route: 065

REACTIONS (8)
  - Headache [Recovered/Resolved]
  - Ventricular asystole [Recovered/Resolved]
  - Presyncope [Recovered/Resolved]
  - Nausea [Recovered/Resolved]
  - Hyperhidrosis [Recovered/Resolved]
  - Retching [Recovered/Resolved]
  - Loss of consciousness [Recovered/Resolved]
  - Sinus bradycardia [Recovered/Resolved]
